FAERS Safety Report 6831669-X (Version None)
Quarter: 2010Q3

REPORT INFORMATION
  Report Type: 
  Country: None (occurrence: None)
  Receive Date: 20100707
  Receipt Date: 20100622
  Transmission Date: 20110219
  Serious: Yes (Hospitalization)
  Sender: FDA-Public Use
  Company Number: 2010002581

PATIENT
  Age: 65 Year
  Sex: Male

DRUGS (6)
  1. ERLOTINIB HYDROCHLORIDE [Suspect]
     Indication: NEOPLASM
     Dosage: 150 MG, QD, ORAL
     Route: 048
     Dates: start: 20100208
  2. AZACITIDINE (AZACITIDINE) [Suspect]
     Indication: NEOPLASM
     Dosage: 190 MG, SUBCUTANEOUS
     Route: 058
     Dates: start: 20100208
  3. FENTANYL-100 [Concomitant]
  4. PERCOCET [Concomitant]
  5. DIGOXIN [Concomitant]
  6. CARVEDILOL [Concomitant]

REACTIONS (6)
  - ASTHENIA [None]
  - BRONCHOPNEUMONIA [None]
  - HYPOTENSION [None]
  - LEUKOPENIA [None]
  - NEUTROPENIA [None]
  - RED BLOOD CELL COUNT DECREASED [None]
